FAERS Safety Report 15222417 (Version 2)
Quarter: 2018Q3

REPORT INFORMATION
  Report Type: Spontaneous
  Country: ZA (occurrence: ZA)
  Receive Date: 20180731
  Receipt Date: 20180803
  Transmission Date: 20181010
  Serious: No
  Sender: FDA-Public Use
  Company Number: ZA-PFIZER INC-2018306646

PATIENT
  Sex: Female

DRUGS (1)
  1. ADVIL COLD AND SINUS [Suspect]
     Active Substance: IBUPROFEN\PSEUDOEPHEDRINE HYDROCHLORIDE
     Dosage: 1 DF, 3X/DAY(TDS FOR 6 DAYS)

REACTIONS (6)
  - Hyperhidrosis [Unknown]
  - Rash [Unknown]
  - Vertigo [Unknown]
  - Insomnia [Unknown]
  - Tinnitus [Unknown]
  - Dizziness [Unknown]
